FAERS Safety Report 9382486 (Version 2)
Quarter: 2013Q3

REPORT INFORMATION
  Report Type: Spontaneous
  Country: JP (occurrence: JP)
  Receive Date: 20130703
  Receipt Date: 20130814
  Transmission Date: 20140515
  Serious: Yes (Hospitalization, Other)
  Sender: FDA-Public Use
  Company Number: JP-UCBSA-090645

PATIENT
  Age: 71 Year
  Sex: Female
  Weight: 62.2 kg

DRUGS (12)
  1. CIMZIA [Suspect]
     Indication: RHEUMATOID ARTHRITIS
     Route: 058
     Dates: start: 20130509, end: 20130605
  2. AMLODIPINE [Concomitant]
     Dosage: DAILY DOSE: 5 MG
     Route: 048
     Dates: start: 20130410
  3. PREDNISOLONE [Concomitant]
     Dosage: DAILY DOSE: 10 MG
     Route: 048
     Dates: start: 20110513
  4. PREMINENT [Concomitant]
     Dosage: DAILY DOSE: 1 DF
     Route: 048
     Dates: start: 20111123
  5. PARIET [Concomitant]
     Dosage: DAILY DOSE: 10 MG
     Route: 048
     Dates: start: 20110426
  6. ISCOTIN [Concomitant]
     Dosage: DAILY DOSE: 100 MG
     Route: 048
     Dates: start: 20120606
  7. BAKTAR [Concomitant]
     Dosage: DAILY DOSE: 1 DF
     Route: 048
     Dates: start: 20120913
  8. ALLEGRA [Concomitant]
     Dosage: DIALY DOSE: 60 MG
     Route: 048
     Dates: start: 20110502
  9. HUMALOG [Concomitant]
     Dosage: DAILY DOSE: 30 IU
     Route: 058
     Dates: start: 20111114
  10. LANTUS [Concomitant]
     Dosage: DAILY DOSE: 12 IU
     Route: 058
     Dates: start: 20110422
  11. BONALON 35MG [Concomitant]
     Route: 048
     Dates: start: 20110824
  12. CELECOX [Concomitant]
     Dosage: DAILY DOSE: 400 MG
     Route: 048
     Dates: start: 20130227

REACTIONS (1)
  - Pneumonia [Recovering/Resolving]
